FAERS Safety Report 7166739-2 (Version None)
Quarter: 2010Q4

REPORT INFORMATION
  Report Type: 
  Country: None (occurrence: None)
  Receive Date: 20101216
  Receipt Date: 20101206
  Transmission Date: 20110411
  Serious: Yes (Hospitalization)
  Sender: FDA-Public Use
  Company Number: CA-JNJFOC-20101203426

PATIENT
  Sex: Male
  Weight: 94.2 kg

DRUGS (7)
  1. REMICADE [Suspect]
     Indication: CROHN'S DISEASE
     Dosage: 81 DOSES
     Route: 042
  2. REMICADE [Suspect]
     Dosage: 61 TOTAL DOSES
     Route: 042
  3. IMURAN [Concomitant]
  4. FOSAMAX [Concomitant]
  5. PANTOLOC [Concomitant]
  6. FENTANYL-100 [Concomitant]
  7. OXYCONTIN [Concomitant]

REACTIONS (1)
  - NEPHROLITHIASIS [None]
